FAERS Safety Report 5234904-7 (Version None)
Quarter: 2007Q1

REPORT INFORMATION
  Report Type: 
  Country: None (occurrence: None)
  Receive Date: 20070209
  Receipt Date: 20070129
  Transmission Date: 20070707
  Serious: Yes (Other)
  Sender: FDA-Public Use
  Company Number: BR-PFIZER INC-2007008701

PATIENT
  Sex: Female

DRUGS (3)
  1. DOSTINEX [Suspect]
     Indication: HYPERPROLACTINAEMIA
     Route: 048
  2. BROMOCRIPTINE MESYLATE [Concomitant]
     Route: 048
  3. ALL OTHER THERAPEUTIC PRODUCTS [Concomitant]
     Route: 065

REACTIONS (3)
  - OSTEOPOROSIS [None]
  - POLYCYSTIC OVARIES [None]
  - VISUAL DISTURBANCE [None]
